FAERS Safety Report 5240106-0 (Version None)
Quarter: 2007Q1

REPORT INFORMATION
  Report Type: 
  Country: None (occurrence: None)
  Receive Date: 20070216
  Receipt Date: 20070206
  Transmission Date: 20070707
  Serious: Yes (Other)
  Sender: FDA-Public Use
  Company Number: JP-PFIZER INC-2007010559

PATIENT
  Age: 72 Year
  Sex: Female

DRUGS (2)
  1. VIBRAMYCIN (TABLETS) [Suspect]
     Indication: PEMPHIGOID
     Dosage: DAILY DOSE:100MG
     Route: 048
     Dates: start: 20070119, end: 20070124
  2. NICOTINAMIDE [Concomitant]
     Indication: PEMPHIGOID
     Dosage: DAILY DOSE:1.5GRAM
     Route: 048
     Dates: start: 20070119, end: 20070124

REACTIONS (1)
  - RENAL FAILURE ACUTE [None]
